FAERS Safety Report 6768717-1 (Version None)
Quarter: 2010Q2

REPORT INFORMATION
  Report Type: 
  Country: None (occurrence: None)
  Receive Date: 20100614
  Receipt Date: 20100604
  Transmission Date: 20101027
  Serious: Yes (Hospitalization, Other)
  Sender: FDA-Public Use
  Company Number: US-AMGEN-QUU413617

PATIENT
  Sex: Female
  Weight: 57.7 kg

DRUGS (5)
  1. ENBREL [Suspect]
     Indication: PSORIATIC ARTHROPATHY
     Route: 058
     Dates: start: 20081001, end: 20100429
  2. ENBREL [Suspect]
     Indication: PSORIASIS
  3. PRENATAL VITAMINS [Concomitant]
     Dates: start: 20091209
  4. VITAMINS, OTHER COMBINATIONS [Concomitant]
     Dates: start: 20100325
  5. UNSPECIFIED MEDICATION [Concomitant]

REACTIONS (4)
  - LABOUR INDUCTION [None]
  - PAIN [None]
  - PREMATURE LABOUR [None]
  - RASH [None]
